FAERS Safety Report 12888410 (Version 1)
Quarter: 2016Q4

REPORT INFORMATION
  Report Type: Spontaneous
  Country: US (occurrence: US)
  Receive Date: 20161027
  Receipt Date: 20161027
  Transmission Date: 20170207
  Serious: Yes (Hospitalization, Disabling, Other)
  Sender: FDA-Public Use
  Company Number: US-009507513-1012USA01316

PATIENT
  Sex: Female
  Weight: 81.65 kg

DRUGS (5)
  1. FOSAMAX [Suspect]
     Active Substance: ALENDRONATE SODIUM
     Indication: OSTEOPOROSIS
     Dosage: 10 MG, UNKNOWN
     Route: 065
     Dates: start: 20000410, end: 200112
  2. FOSAMAX [Suspect]
     Active Substance: ALENDRONATE SODIUM
     Indication: OSTEOPENIA
     Dosage: 10 MG, QD
     Route: 048
     Dates: start: 200810, end: 2009
  3. FOSAMAX PLUS D [Suspect]
     Active Substance: ALENDRONATE SODIUM\CHOLECALCIFEROL
     Indication: OSTEOPOROSIS
     Dosage: 70MG/2800IU QW
     Route: 048
     Dates: start: 20061213, end: 200905
  4. FOSAMAX [Suspect]
     Active Substance: ALENDRONATE SODIUM
     Dosage: 70 MG, QW
     Route: 048
     Dates: start: 200202, end: 200612
  5. MK-9278 [Concomitant]
     Active Substance: VITAMINS
     Indication: PRODUCT USED FOR UNKNOWN INDICATION

REACTIONS (83)
  - Femur fracture [Unknown]
  - Diabetes mellitus [Unknown]
  - Ileus [Unknown]
  - Joint effusion [Unknown]
  - Spinal osteoarthritis [Unknown]
  - Swelling [Unknown]
  - Breast disorder [Unknown]
  - Large intestine polyp [Unknown]
  - Hypoaesthesia [Unknown]
  - Intervertebral disc degeneration [Unknown]
  - Arthralgia [Unknown]
  - Tooth fracture [Unknown]
  - Varicose vein [Unknown]
  - Blood cholesterol increased [Unknown]
  - Pain [Unknown]
  - Increased tendency to bruise [Unknown]
  - Hyperlipidaemia [Unknown]
  - Sjogren^s syndrome [Unknown]
  - Spondylolisthesis [Unknown]
  - Rib fracture [Unknown]
  - Tendonitis [Unknown]
  - Hypertensive heart disease [Unknown]
  - Pain in jaw [Unknown]
  - Rheumatoid arthritis [Unknown]
  - Fibula fracture [Unknown]
  - Sinusitis [Not Recovered/Not Resolved]
  - Tendon pain [Unknown]
  - Gastrooesophageal reflux disease [Unknown]
  - Osteopenia [Unknown]
  - Back pain [Not Recovered/Not Resolved]
  - Skin lesion [Unknown]
  - Supraventricular extrasystoles [Unknown]
  - Kyphosis [Unknown]
  - Myelopathy [Unknown]
  - Osteoarthritis [Unknown]
  - Hepatic lesion [Unknown]
  - Bone disorder [Unknown]
  - Tricuspid valve disease [Unknown]
  - Cardiac murmur [Unknown]
  - Haemorrhoids [Unknown]
  - Exostosis [Unknown]
  - Hyperglycaemia [Unknown]
  - Multiple fractures [Unknown]
  - Bone density decreased [Unknown]
  - Scoliosis [Not Recovered/Not Resolved]
  - Seborrhoeic keratosis [Unknown]
  - Tongue discolouration [Unknown]
  - Muscle disorder [Unknown]
  - Blood pressure diastolic abnormal [Unknown]
  - Amnesia [Unknown]
  - Electrocardiogram abnormal [Unknown]
  - Limb mass [Unknown]
  - Rib fracture [Unknown]
  - Lymphadenopathy [Unknown]
  - Fall [Unknown]
  - Drug ineffective [Unknown]
  - Arthropathy [Unknown]
  - Hepatic cyst [Unknown]
  - Metastases to liver [Unknown]
  - Renal cyst [Unknown]
  - Fall [Unknown]
  - Hyperhidrosis [Unknown]
  - Breast disorder [Unknown]
  - Dyspnoea [Unknown]
  - Diverticulum [Unknown]
  - Pain [Unknown]
  - Lumbosacral radiculopathy [Unknown]
  - Cystitis [Unknown]
  - Hyperlipidaemia [Unknown]
  - Tibia fracture [Unknown]
  - Osteoporosis [Unknown]
  - Rotator cuff syndrome [Unknown]
  - Abdominal pain lower [Unknown]
  - Metastatic neoplasm [Unknown]
  - Femur fracture [Recovering/Resolving]
  - Pain in extremity [Unknown]
  - Hypertension [Unknown]
  - Bone density decreased [Unknown]
  - Lumbar spinal stenosis [Unknown]
  - Adrenal mass [Unknown]
  - Rectal haemorrhage [Unknown]
  - Intervertebral disc disorder [Unknown]
  - Serology positive [Unknown]

NARRATIVE: CASE EVENT DATE: 20001204
